FAERS Safety Report 7055122-6 (Version None)
Quarter: 2010Q4

REPORT INFORMATION
  Report Type: 
  Country: None (occurrence: None)
  Receive Date: 20101019
  Receipt Date: 20101019
  Transmission Date: 20110411
  Serious: Yes (Hospitalization, Other)
  Sender: FDA-Public Use
  Company Number: None

PATIENT
  Age: 74 Year
  Sex: Male
  Weight: 73.2 kg

DRUGS (1)
  1. CLOPIDOGREL [Suspect]
     Indication: CORONARY ARTERIAL STENT INSERTION
     Dosage: 75 MG ONCE DAILY PO
     Route: 048
     Dates: start: 20050121, end: 20101014

REACTIONS (3)
  - CHEST PAIN [None]
  - DRUG RESISTANCE [None]
  - THROMBOSIS IN DEVICE [None]
